FAERS Safety Report 10281937 (Version 1)
Quarter: 2014Q3

REPORT INFORMATION
  Report Type: Spontaneous
  Country: SE (occurrence: SE)
  Receive Date: 20140707
  Receipt Date: 20140707
  Transmission Date: 20150326
  Serious: Yes (Life-Threatening, Other)
  Sender: FDA-Public Use
  Company Number: SE-PFIZER INC-2014181057

PATIENT
  Age: 75 Year
  Sex: Male

DRUGS (1)
  1. PRO-EPANUTIN [Suspect]
     Active Substance: FOSPHENYTOIN\FOSPHENYTOIN SODIUM
     Indication: STATUS EPILEPTICUS
     Dosage: 1500MG+500MG
     Route: 042
     Dates: start: 20140530, end: 20140530

REACTIONS (3)
  - Laryngeal oedema [Not Recovered/Not Resolved]
  - Respiratory arrest [Unknown]
  - Laryngeal haematoma [Unknown]

NARRATIVE: CASE EVENT DATE: 20140530
